FAERS Safety Report 14311341 (Version 1)
Quarter: 2017Q4

REPORT INFORMATION
  Report Type: Spontaneous
  Country: US (occurrence: US)
  Receive Date: 20171221
  Receipt Date: 20171221
  Transmission Date: 20180321
  Serious: No
  Sender: FDA-Public Use
  Company Number: US-NOVEN PHARMACEUTICALS, INC.-US2017000857

PATIENT

DRUGS (5)
  1. MINIVELLE [Suspect]
     Active Substance: ESTRADIOL
     Indication: NIGHT SWEATS
     Dosage: 0.0375 MG, EVERY SUNDAY AND WEDNESDAY
     Route: 062
     Dates: start: 201705, end: 201706
  2. PROMETRIUM [Concomitant]
     Active Substance: PROGESTERONE
     Dosage: 100 MG, UNK
  3. MINIVELLE [Suspect]
     Active Substance: ESTRADIOL
     Indication: HOT FLUSH
     Dosage: 0.05 MG, EVERY SUNDAY AND WEDNESDAY
     Route: 062
     Dates: start: 201009, end: 201705
  4. MINIVELLE [Suspect]
     Active Substance: ESTRADIOL
     Indication: MOOD SWINGS
     Dosage: 0.0375 MG, EVERY SUNDAY AND WEDNESDAY
     Route: 062
     Dates: start: 201706
  5. PROMETRIUM [Concomitant]
     Active Substance: PROGESTERONE
     Dosage: 200 MG, UNK
     Route: 048

REACTIONS (3)
  - No adverse event [Unknown]
  - Off label use [Unknown]
  - Drug dose omission [Recovered/Resolved]

NARRATIVE: CASE EVENT DATE: 201009
